FAERS Safety Report 14804037 (Version 1)
Quarter: 2018Q2

REPORT INFORMATION
  Report Type: Spontaneous
  Country: US (occurrence: US)
  Receive Date: 20180425
  Receipt Date: 20180425
  Transmission Date: 20180711
  Serious: No
  Sender: FDA-Public Use
  Company Number: US-TEVA-2017-US-842542

PATIENT

DRUGS (1)
  1. CEFALEXIN [Suspect]
     Active Substance: CEPHALEXIN
     Dosage: DOSE STRENGTH:  250 MG/5 ML
     Route: 065

REACTIONS (1)
  - Product storage error [Unknown]
